FAERS Safety Report 6349127-8 (Version None)
Quarter: 2009Q3

REPORT INFORMATION
  Report Type: 
  Country: None (occurrence: None)
  Receive Date: 20090911
  Receipt Date: 20090903
  Transmission Date: 20100115
  Serious: Yes (Hospitalization)
  Sender: FDA-Public Use
  Company Number: NL-ABBOTT-09P-114-0595118-00

PATIENT
  Sex: Female
  Weight: 73.5 kg

DRUGS (5)
  1. HUMIRA [Suspect]
     Indication: RHEUMATOID ARTHRITIS
     Route: 058
     Dates: start: 20050701
  2. HUMIRA [Suspect]
     Route: 058
  3. METHOTREXATE [Suspect]
     Indication: RHEUMATOID ARTHRITIS
     Route: 048
     Dates: start: 20030101
  4. FOLIC ACID [Concomitant]
     Indication: RHEUMATOID ARTHRITIS
     Route: 048
     Dates: start: 20030101
  5. OMEPRAZOLE [Concomitant]
     Indication: GASTRIC DISORDER
     Route: 048
     Dates: start: 20020101

REACTIONS (13)
  - COORDINATION ABNORMAL [None]
  - DIPLOPIA [None]
  - HEADACHE [None]
  - HYPERHIDROSIS [None]
  - MUSCULAR WEAKNESS [None]
  - MUSCULOSKELETAL CHEST PAIN [None]
  - PARAESTHESIA [None]
  - PLEURISY [None]
  - PYOTHORAX [None]
  - PYREXIA [None]
  - SYNCOPE [None]
  - TACHYCARDIA [None]
  - VERTIGO [None]
